FAERS Safety Report 8305856-8 (Version None)
Quarter: 2012Q2

REPORT INFORMATION
  Report Type: 
  Country: None (occurrence: None)
  Receive Date: 20120423
  Receipt Date: 20120417
  Transmission Date: 20120825
  Serious: Yes (Death, Hospitalization)
  Sender: FDA-Public Use
  Company Number: US-CELGENEUS-163-21880-08020647

PATIENT
  Sex: Male
  Weight: 71 kg

DRUGS (21)
  1. PROCHLORPERAZINE [Concomitant]
     Indication: NAUSEA
     Dosage: 10 MILLIGRAM
     Route: 048
  2. ACYCLOVIR [Concomitant]
     Dosage: 200 MILLIGRAM
     Route: 041
  3. FILGRASTIM [Concomitant]
     Route: 065
  4. POTASSIUM CHLORIDE [Concomitant]
     Dosage: 20 MILLIEQUIVALENTS
     Route: 048
  5. PANTOPRAZOLE [Concomitant]
     Dosage: 40 MILLIGRAM
     Route: 041
  6. DEXAMETHASONE [Suspect]
     Indication: AMYLOIDOSIS
     Dosage: 40 MILLIGRAM
     Route: 065
     Dates: start: 20080112, end: 20080202
  7. CYTOXAN [Suspect]
     Indication: AMYLOIDOSIS
     Dosage: 550 MILLIGRAM
     Route: 065
     Dates: start: 20080112, end: 20080126
  8. LEVAQUIN [Suspect]
  9. LASIX [Concomitant]
     Dosage: 40 MILLIGRAM
     Route: 048
  10. ASPIRIN [Concomitant]
     Dosage: 325 MILLIGRAM
     Route: 048
  11. SYNTHROID [Concomitant]
     Dosage: 112 MICROGRAM
     Route: 048
  12. OMEPRAZOLE [Concomitant]
     Dosage: 20 MILLIGRAM
     Route: 048
  13. HEPARIN [Concomitant]
     Route: 065
  14. ACYCLOVIR [Concomitant]
     Dosage: 200 MILLIGRAM
     Route: 048
  15. INSULIN DRIP [Concomitant]
     Route: 065
  16. HYDROCORTISONE [Concomitant]
     Dosage: 50 MILLIGRAM
     Route: 041
  17. REVLIMID [Suspect]
     Indication: AMYLOIDOSIS
     Dosage: 15 MILLIGRAM
     Route: 048
     Dates: start: 20080112, end: 20080202
  18. FLUDROCORTISONE ACETATE [Concomitant]
     Route: 065
  19. LEVAQUIN [Suspect]
     Dosage: 250 MILLIGRAM
     Route: 048
     Dates: start: 20080128, end: 20080131
  20. CLOTRIMAZOLE [Concomitant]
     Route: 065
  21. DARBEPOETIN [Concomitant]
     Route: 065

REACTIONS (3)
  - STEVENS-JOHNSON SYNDROME [None]
  - SEPTIC SHOCK [None]
  - PNEUMONIA [None]
